FAERS Safety Report 12721990 (Version 2)
Quarter: 2016Q4

REPORT INFORMATION
  Report Type: Spontaneous
  Country: JP (occurrence: JP)
  Receive Date: 20160907
  Receipt Date: 20161025
  Transmission Date: 20170207
  Serious: Yes (Hospitalization, Other)
  Sender: FDA-Public Use
  Company Number: JP-GLAXOSMITHKLINE-JP2016JPN128813

PATIENT
  Age: 79 Year
  Sex: Male
  Weight: 59 kg

DRUGS (2)
  1. UFT [Suspect]
     Active Substance: TEGAFUR\URACIL
     Indication: CHEMOTHERAPY
     Dosage: 500 MG, 1D
     Route: 048
     Dates: start: 20160729, end: 20160825
  2. AVOLVE [Suspect]
     Active Substance: DUTASTERIDE
     Indication: BENIGN PROSTATIC HYPERPLASIA
     Dosage: 0.5 MG, QD
     Route: 048
     Dates: start: 20160808, end: 20160830

REACTIONS (6)
  - Decreased appetite [Unknown]
  - Liver disorder [Recovered/Resolved]
  - Disseminated intravascular coagulation [Recovering/Resolving]
  - Nausea [Unknown]
  - Diarrhoea [Unknown]
  - Pyrexia [Unknown]

NARRATIVE: CASE EVENT DATE: 2016
